FAERS Safety Report 6977913-X (Version None)
Quarter: 2010Q3

REPORT INFORMATION
  Report Type: 
  Country: None (occurrence: None)
  Receive Date: 20100913
  Receipt Date: 20100901
  Transmission Date: 20110219
  Serious: No
  Sender: FDA-Public Use
  Company Number: US-US-EMD SERONO, INC.-7009286

PATIENT
  Sex: Female
  Weight: 48 kg

DRUGS (16)
  1. REBIF [Suspect]
     Indication: MULTIPLE SCLEROSIS
     Route: 058
     Dates: start: 20000101, end: 20090301
  2. REBIF [Suspect]
     Route: 058
     Dates: start: 20090801, end: 20100520
  3. REBIF [Suspect]
     Route: 058
     Dates: start: 20100604
  4. BACLOFEN [Concomitant]
     Indication: MUSCLE SPASMS
     Dates: end: 20100520
  5. BACLOFEN [Concomitant]
     Dates: start: 20100604
  6. GABAPENTIN [Concomitant]
     Indication: NEURALGIA
     Dates: end: 20100520
  7. GABAPENTIN [Concomitant]
     Dates: start: 20100604
  8. POTASSIUM CHLORIDE [Concomitant]
     Indication: BLOOD POTASSIUM DECREASED
     Dates: end: 20100520
  9. POTASSIUM CHLORIDE [Concomitant]
     Dates: start: 20100604
  10. LORAZEPAM [Concomitant]
     Indication: ANXIETY
     Dates: end: 20100520
  11. LORAZEPAM [Concomitant]
     Dates: start: 20100604
  12. AMLODIPINE [Concomitant]
     Indication: HYPERTENSION
     Dates: end: 20100520
  13. AMLODIPINE [Concomitant]
     Dates: start: 20100604
  14. NORVASC [Concomitant]
     Indication: HYPERTENSION
  15. UNSPECIFIED MEDICATION [Concomitant]
     Indication: MULTIPLE SCLEROSIS
  16. BIRTH CONTROL PILL [Concomitant]
     Indication: ORAL CONTRACEPTION
     Route: 048
     Dates: end: 20090701

REACTIONS (5)
  - ABORTION SPONTANEOUS [None]
  - DRUG EXPOSURE DURING PREGNANCY [None]
  - GASTROOESOPHAGEAL REFLUX DISEASE [None]
  - INJECTION SITE MASS [None]
  - WEIGHT DECREASED [None]
